FAERS Safety Report 6878698-8 (Version None)
Quarter: 2010Q3

REPORT INFORMATION
  Report Type: 
  Country: None (occurrence: None)
  Receive Date: 20100728
  Receipt Date: 20100722
  Transmission Date: 20110219
  Serious: Yes (Hospitalization)
  Sender: FDA-Public Use
  Company Number: B0667057A

PATIENT
  Sex: Male

DRUGS (2)
  1. PAZOPANIB [Suspect]
     Indication: NEOPLASM
     Dosage: 1000MG PER DAY
     Dates: start: 20100614
  2. IFOSFAMIDE [Suspect]
     Indication: NEOPLASM
     Dosage: 3GM2 PER DAY
     Route: 051
     Dates: start: 20100621, end: 20100715

REACTIONS (1)
  - FEBRILE NEUTROPENIA [None]
